FAERS Safety Report 7356444-1 (Version None)
Quarter: 2011Q1

REPORT INFORMATION
  Report Type: 
  Country: None (occurrence: None)
  Receive Date: 20110316
  Receipt Date: 20110309
  Transmission Date: 20110831
  Serious: Yes (Other)
  Sender: FDA-Public Use
  Company Number: US-ABBOTT-11P-163-0711235-00

PATIENT
  Sex: Female
  Weight: 74.91 kg

DRUGS (2)
  1. LUPRON DEPOT [Suspect]
     Indication: OVARIAN CYST
     Dates: start: 20110121, end: 20110221
  2. PROTONIX [Concomitant]
     Indication: GASTRITIS

REACTIONS (7)
  - CHEST PAIN [None]
  - RASH [None]
  - RASH GENERALISED [None]
  - PAIN [None]
  - HYPERSENSITIVITY [None]
  - CHOKING SENSATION [None]
  - PRURITUS [None]
